FAERS Safety Report 8552452-3 (Version None)
Quarter: 2012Q3

REPORT INFORMATION
  Report Type: 
  Country: None (occurrence: None)
  Receive Date: 20120731
  Receipt Date: 20120725
  Transmission Date: 20120928
  Serious: Yes (Other)
  Sender: FDA-Public Use
  Company Number: SE-JNJFOC-20120713534

PATIENT
  Age: 32 Year
  Sex: Female

DRUGS (1)
  1. SIMPONI [Suspect]
     Indication: ANKYLOSING SPONDYLITIS
     Route: 058
     Dates: start: 20120627, end: 20120702

REACTIONS (1)
  - ANGIOEDEMA [None]
